FAERS Safety Report 17833744 (Version 3)
Quarter: 2022Q4

REPORT INFORMATION
  Report Type: Other
  Country: KR (occurrence: None)
  Receive Date: 20200528
  Receipt Date: 20221104
  Transmission Date: 20230113
  Serious: Yes (Hospitalization)
  Sender: FDA-Public Use
  Company Number: KR-ROCHE-2416417

PATIENT
  Age: 68 Year
  Sex: Female
  Weight: 39 kg

DRUGS (11)
  1. ATEZOLIZUMAB [Suspect]
     Active Substance: ATEZOLIZUMAB
     Indication: Non-small cell lung cancer
     Route: 042
     Dates: start: 20190716
  2. ATEZOLIZUMAB [Suspect]
     Active Substance: ATEZOLIZUMAB
     Route: 042
     Dates: start: 20190806
  3. ATEZOLIZUMAB [Suspect]
     Active Substance: ATEZOLIZUMAB
     Route: 042
     Dates: start: 20190827
  4. LAMINA-G [Concomitant]
     Indication: Dyspepsia
     Dates: start: 20190409
  5. ERDOSTEINE [Concomitant]
     Active Substance: ERDOSTEINE
     Indication: Productive cough
     Dates: start: 20190305
  6. NALOXONE HYDROCHLORIDE\OXYCODONE HYDROCHLORIDE [Concomitant]
     Active Substance: NALOXONE HYDROCHLORIDE\OXYCODONE HYDROCHLORIDE
     Indication: Chest pain
     Dosage: 40/20 MG
     Dates: start: 20190312
  7. ABSTRAL [Concomitant]
     Active Substance: FENTANYL CITRATE
     Indication: Chest pain
     Dates: start: 20190409
  8. MAGNESIUM HYDROXIDE [Concomitant]
     Active Substance: MAGNESIUM HYDROXIDE
     Indication: Constipation
     Dates: start: 20190331
  9. PENIRAMIN [Concomitant]
     Dates: start: 20190716, end: 20190716
  10. PENIRAMIN [Concomitant]
     Dates: start: 20190806, end: 20190806
  11. PENIRAMIN [Concomitant]
     Dates: start: 20190827, end: 20190827

REACTIONS (2)
  - Syncope [Recovered/Resolved]
  - Hyperthyroidism [Not Recovered/Not Resolved]

NARRATIVE: CASE EVENT DATE: 20190827
